FAERS Safety Report 18142333 (Version 1)
Quarter: 2020Q3

REPORT INFORMATION
  Report Type: Spontaneous
  Country: US (occurrence: US)
  Receive Date: 20200812
  Receipt Date: 20200812
  Transmission Date: 20201103
  Serious: No
  Sender: FDA-Public Use
  Company Number: US-TEVA-2020-US-1812890

PATIENT
  Sex: Female

DRUGS (2)
  1. XALKORI [Concomitant]
     Active Substance: CRIZOTINIB
     Route: 065
     Dates: start: 2014
  2. OXYCODONE [Suspect]
     Active Substance: OXYCODONE
     Indication: PAIN
     Route: 065

REACTIONS (1)
  - Depressed mood [Unknown]
